FAERS Safety Report 13997960 (Version 1)
Quarter: 2017Q3

REPORT INFORMATION
  Report Type: Spontaneous
  Country: US (occurrence: US)
  Receive Date: 20170921
  Receipt Date: 20170921
  Transmission Date: 20171128
  Serious: Yes (Other)
  Sender: FDA-Public Use
  Company Number: US-DUSA PHARMACEUTICALS, INC.-2027180

PATIENT
  Age: 59 Year
  Sex: Female

DRUGS (1)
  1. LEVULAN KERASTICK [Suspect]
     Active Substance: AMINOLEVULINIC ACID HYDROCHLORIDE
     Indication: ACTINIC KERATOSIS
     Route: 061
     Dates: start: 20170901, end: 20170901

REACTIONS (3)
  - Photophobia [Recovering/Resolving]
  - Malaise [Recovered/Resolved]
  - Porphyria acute [Unknown]

NARRATIVE: CASE EVENT DATE: 20170903
